FAERS Safety Report 6441388-X (Version None)
Quarter: 2009Q4

REPORT INFORMATION
  Report Type: 
  Country: None (occurrence: None)
  Receive Date: 20091116
  Receipt Date: 20091106
  Transmission Date: 20100525
  Serious: Yes (Other)
  Sender: FDA-Public Use
  Company Number: US-ABBOTT-09P-163-0607506-00

PATIENT
  Sex: Female
  Weight: 70.37 kg

DRUGS (8)
  1. HUMIRA [Suspect]
     Indication: RHEUMATOID ARTHRITIS
     Dates: start: 20090626
  2. HUMIRA [Suspect]
     Indication: CROHN'S DISEASE
  3. LORTAB [Concomitant]
     Indication: PAIN
  4. DIAZEPAM [Concomitant]
     Indication: MUSCLE RELAXANT THERAPY
  5. PREVACID [Concomitant]
     Indication: GASTROOESOPHAGEAL REFLUX DISEASE
  6. PHENERGAN HCL [Concomitant]
     Indication: NAUSEA
  7. ASPIRIN [Concomitant]
     Indication: RHEUMATOID ARTHRITIS
  8. ASPIRIN [Concomitant]
     Indication: ANTICOAGULANT THERAPY

REACTIONS (6)
  - ABDOMINAL PAIN [None]
  - BACK PAIN [None]
  - OVARIAN CYST RUPTURED [None]
  - PAIN IN EXTREMITY [None]
  - PELVIC MASS [None]
  - PELVIC PAIN [None]
